FAERS Safety Report 6490429-2 (Version None)
Quarter: 2009Q4

REPORT INFORMATION
  Report Type: 
  Country: None (occurrence: None)
  Receive Date: 20091208
  Receipt Date: 20091123
  Transmission Date: 20100525
  Serious: Yes (Hospitalization)
  Sender: FDA-Public Use
  Company Number: US-DEXPHARM-20092095

PATIENT
  Sex: Female
  Weight: 65.76 kg

DRUGS (5)
  1. OMEPRAZOLE [Suspect]
     Indication: DYSPEPSIA
     Dosage: 20 MG ONCE IN 2 DAYS, ORAL
     Route: 048
     Dates: end: 20080315
  2. PREMARIN [Concomitant]
  3. METOPROLOL TARTRATE [Concomitant]
  4. ROPINIROLE [Concomitant]
  5. ASPIRIN [Concomitant]

REACTIONS (5)
  - CONCUSSION [None]
  - CONVULSION [None]
  - DIZZINESS [None]
  - FALL [None]
  - INCORRECT DRUG ADMINISTRATION DURATION [None]
